FAERS Safety Report 8107217-3 (Version None)
Quarter: 2012Q1

REPORT INFORMATION
  Report Type: 
  Country: None (occurrence: None)
  Receive Date: 20120202
  Receipt Date: 20120120
  Transmission Date: 20120608
  Serious: Yes (Hospitalization, Other)
  Sender: FDA-Public Use
  Company Number: US-ELI_LILLY_AND_COMPANY-US201111004232

PATIENT
  Sex: Female

DRUGS (11)
  1. ENABLEX                            /01760401/ [Concomitant]
     Dosage: 15 MG, UNK
  2. LEVOTHYROXINE SODIUM [Concomitant]
     Dosage: 0.25 MG, UNK
  3. LIPITOR [Concomitant]
     Dosage: 10 MG, UNK
  4. FORTEO [Suspect]
     Indication: OSTEOPOROSIS
     Dosage: 20 UG, QD
     Route: 065
     Dates: start: 20101119
  5. MOBIC [Concomitant]
     Dosage: 15 MG, UNK
  6. FORTEO [Suspect]
     Dosage: 20 UG, QD
     Route: 065
  7. FORTEO [Suspect]
     Dosage: 20 UG, QD
     Route: 065
  8. CODEINE PHOSPHATE [Concomitant]
     Indication: PAIN
     Dosage: 300 MG, PRN
  9. NEURONTIN [Concomitant]
     Dosage: 300 MG, UNK
  10. GABAPENTIN [Concomitant]
  11. LYRICA [Concomitant]
     Dosage: 75 MG, TID

REACTIONS (6)
  - ARTHROPATHY [None]
  - PAIN [None]
  - KNEE ARTHROPLASTY [None]
  - GAIT DISTURBANCE [None]
  - HEARING IMPAIRED [None]
  - BLOOD COUNT ABNORMAL [None]
